FAERS Safety Report 7788269-7 (Version None)
Quarter: 2011Q3

REPORT INFORMATION
  Report Type: 
  Country: None (occurrence: None)
  Receive Date: 20110927
  Receipt Date: 20110916
  Transmission Date: 20111222
  Serious: Yes (Other)
  Sender: FDA-Public Use
  Company Number: AUR-APL-2011-05112

PATIENT
  Age: 69 Year
  Sex: Female
  Weight: 81.6475 kg

DRUGS (3)
  1. LOSARTAN POTASSIUM [Suspect]
     Indication: BLOOD PRESSURE ABNORMAL
     Dosage: 50MG/12.5MG, ORAL
     Route: 048
     Dates: start: 20101201
  2. TOPROL-XL [Concomitant]
  3. CRESTOR [Concomitant]

REACTIONS (5)
  - FATIGUE [None]
  - RASH [None]
  - HEADACHE [None]
  - PARAESTHESIA [None]
  - PRODUCT SUBSTITUTION ISSUE [None]
